FAERS Safety Report 22067524 (Version 1)
Quarter: 2023Q1

REPORT INFORMATION
  Report Type: Spontaneous
  Country: US (occurrence: US)
  Receive Date: 20230307
  Receipt Date: 20230307
  Transmission Date: 20230418
  Serious: No
  Sender: FDA-Public Use
  Company Number: US-VIIV HEALTHCARE LIMITED-US2023AMR031923

PATIENT
  Sex: Female

DRUGS (4)
  1. RILPIVIRINE [Suspect]
     Active Substance: RILPIVIRINE
     Indication: HIV infection
     Dosage: UNK UNK, Z, Q2 MONTHS, 3 ML CABOTEGRAVIR AND 3 ML RILPIVIRINE
     Route: 065
  2. RILPIVIRINE [Suspect]
     Active Substance: RILPIVIRINE
     Dosage: UNK UNK, Z, EVERY 2 MONTHS,  3 ML CABOTEGRAVIR AND 3 ML RILPIVIRINE
     Route: 065
     Dates: start: 20230224
  3. CABOTEGRAVIR [Suspect]
     Active Substance: CABOTEGRAVIR
     Indication: HIV infection
     Dosage: UNK UNK, Z, Q2 MONTHS, 3 ML CABOTEGRAVIR AND 3 ML RILPIVIRINE
     Route: 065
  4. CABOTEGRAVIR [Suspect]
     Active Substance: CABOTEGRAVIR
     Dosage: UNK UNK, Z, EVERY 2 MONTHS,  3 ML CABOTEGRAVIR AND 3 ML RILPIVIRINE
     Route: 065
     Dates: start: 20230224

REACTIONS (2)
  - Injection site discharge [Unknown]
  - Wrong technique in product usage process [Unknown]
